FAERS Safety Report 9222383 (Version 1)
Quarter: 2013Q2

REPORT INFORMATION
  Report Type: Spontaneous
  Country: US (occurrence: US)
  Receive Date: 20130410
  Receipt Date: 20130410
  Transmission Date: 20140414
  Serious: Yes (Other)
  Sender: FDA-Public Use
  Company Number: US-AMGEN-USASP2013023988

PATIENT
  Sex: Female

DRUGS (1)
  1. PROLIA [Suspect]
     Indication: OSTEOPOROSIS POSTMENOPAUSAL
     Dosage: UNK
     Dates: start: 201211

REACTIONS (11)
  - Hepatic haematoma [Unknown]
  - Loss of consciousness [Unknown]
  - Diverticulitis [Unknown]
  - Urinary tract infection [Unknown]
  - Diarrhoea [Unknown]
  - Fall [Unknown]
  - Blood cholesterol increased [Unknown]
  - Dehydration [Unknown]
  - Concussion [Unknown]
  - Back pain [Unknown]
  - Hepatic enzyme abnormal [Unknown]
